FAERS Safety Report 5012255-3 (Version None)
Quarter: 2006Q2

REPORT INFORMATION
  Report Type: 
  Country: None (occurrence: None)
  Receive Date: 20060525
  Receipt Date: 20060525
  Transmission Date: 20061013
  Serious: Yes (Other)
  Sender: FDA-Public Use
  Company Number: None

PATIENT
  Age: 61 Year
  Sex: Female
  Weight: 58.0604 kg

DRUGS (1)
  1. ONXOL   300 MG   IVAC [Suspect]
     Indication: OVARIAN CANCER
     Dosage: 216 MG MONTHLY IV
     Route: 042
     Dates: start: 20060524, end: 20060524

REACTIONS (3)
  - CHEST PAIN [None]
  - DYSPNOEA [None]
  - INFUSION RELATED REACTION [None]
